FAERS Safety Report 21481405 (Version 1)
Quarter: 2022Q4

REPORT INFORMATION
  Report Type: Report from Study
  Country: CA (occurrence: CA)
  Receive Date: 20221019
  Receipt Date: 20221019
  Transmission Date: 20230113
  Serious: Yes (Other)
  Sender: FDA-Public Use
  Company Number: CA-ABBVIE-4166336

PATIENT
  Sex: Female

DRUGS (1)
  1. RINVOQ [Suspect]
     Active Substance: UPADACITINIB
     Indication: Rheumatoid arthritis
     Route: 048
     Dates: start: 20210213

REACTIONS (14)
  - Knee arthroplasty [Unknown]
  - Tremor [Unknown]
  - Parkinson^s disease [Unknown]
  - Pain in extremity [Unknown]
  - Multiple fractures [Unknown]
  - Fatigue [Unknown]
  - Pain [Unknown]
  - Groin pain [Unknown]
  - Burning sensation [Unknown]
  - Fall [Unknown]
  - Unevaluable event [Unknown]
  - Spinal pain [Unknown]
  - Balance disorder [Unknown]
  - Walking aid user [Unknown]

NARRATIVE: CASE EVENT DATE: 20220101
